FAERS Safety Report 18079089 (Version 1)
Quarter: 2020Q3

REPORT INFORMATION
  Report Type: Spontaneous
  Country: US (occurrence: US)
  Receive Date: 20200727
  Receipt Date: 20200727
  Transmission Date: 20201103
  Serious: Yes (Life-Threatening, Other)
  Sender: FDA-Public Use
  Company Number: None

PATIENT
  Age: 37 Year
  Sex: Female

DRUGS (4)
  1. HYDROCORTISONE CREAM [Concomitant]
     Active Substance: HYDROCORTISONE
  2. MUPIROCIN. [Concomitant]
     Active Substance: MUPIROCIN
  3. BENADRYL [Concomitant]
     Active Substance: DIPHENHYDRAMINE HYDROCHLORIDE
  4. BLUMEN ADVANCED INSTANT HAND SANITIZER CLEAR [Suspect]
     Active Substance: ALCOHOL
     Indication: PRODUCT USED FOR UNKNOWN INDICATION
     Dosage: ?          QUANTITY:3 OUNCE(S);?
     Route: 061
     Dates: start: 20200419, end: 20200603

REACTIONS (5)
  - Thermal burn [None]
  - Pruritus [None]
  - Blister [None]
  - Paraesthesia [None]
  - Vision blurred [None]

NARRATIVE: CASE EVENT DATE: 20200615
